FAERS Safety Report 19058123 (Version 1)
Quarter: 2021Q1

REPORT INFORMATION
  Report Type: Report from Study
  Country: US (occurrence: US)
  Receive Date: 20210324
  Receipt Date: 20210324
  Transmission Date: 20210420
  Serious: Yes (Hospitalization)
  Sender: FDA-Public Use
  Company Number: US-JNJFOC-20210339786

PATIENT
  Age: 60 Year
  Sex: Male

DRUGS (2)
  1. MYCOPHENOLATE MOFETIL. [Concomitant]
     Active Substance: MYCOPHENOLATE MOFETIL
  2. REMICADE [Suspect]
     Active Substance: INFLIXIMAB
     Indication: IMMUNE-MEDIATED PNEUMONITIS
     Route: 042

REACTIONS (6)
  - Systemic candida [Recovered/Resolved]
  - Febrile neutropenia [Recovered/Resolved]
  - Peritonitis bacterial [Recovered/Resolved]
  - Product use in unapproved indication [Unknown]
  - Sepsis [Recovered/Resolved]
  - Off label use [Unknown]
